FAERS Safety Report 12701911 (Version 1)
Quarter: 2016Q3

REPORT INFORMATION
  Report Type: Spontaneous
  Country: US (occurrence: None)
  Receive Date: 20160830
  Receipt Date: 20160830
  Transmission Date: 20161109
  Serious: No
  Sender: FDA-Public Use
  Company Number: None

PATIENT
  Age: 39 Year
  Sex: Female

DRUGS (17)
  1. NECON [Concomitant]
     Active Substance: ETHINYL ESTRADIOL\NORETHINDRONE
  2. TYLENOL [Concomitant]
     Active Substance: ACETAMINOPHEN
  3. CIMZIA [Concomitant]
     Active Substance: CERTOLIZUMAB PEGOL
  4. DULOXETINE. [Concomitant]
     Active Substance: DULOXETINE
  5. FOLIC ACID. [Concomitant]
     Active Substance: FOLIC ACID
  6. PRISTIQ EXTENDED-RELEASE [Concomitant]
     Active Substance: DESVENLAFAXINE SUCCINATE
  7. ZOLPIDEM [Concomitant]
     Active Substance: ZOLPIDEM\ZOLPIDEM TARTRATE
  8. DEXILANT [Concomitant]
     Active Substance: DEXLANSOPRAZOLE
  9. METHOCARB [Concomitant]
  10. BACLOFEN. [Concomitant]
     Active Substance: BACLOFEN
  11. WELLBUTRIN [Concomitant]
     Active Substance: BUPROPION HYDROCHLORIDE
  12. TURMERIC [Concomitant]
     Active Substance: TURMERIC
  13. VITAMIN B12 [Concomitant]
     Active Substance: CYANOCOBALAMIN
  14. RASUVO [Suspect]
     Active Substance: METHOTREXATE SODIUM
     Indication: PSORIATIC ARTHROPATHY
     Route: 058
     Dates: start: 20150616
  15. ALPRAZOLAM. [Concomitant]
     Active Substance: ALPRAZOLAM
  16. LITHIUM CARB [Concomitant]
     Active Substance: LITHIUM CARBONATE
  17. ONDANSETRON [Concomitant]
     Active Substance: ONDANSETRON

REACTIONS (2)
  - Lethargy [None]
  - Drug dose omission [None]

NARRATIVE: CASE EVENT DATE: 20160828
